FAERS Safety Report 7176464-X (Version None)
Quarter: 2010Q4

REPORT INFORMATION
  Report Type: 
  Country: None (occurrence: None)
  Receive Date: 20101220
  Receipt Date: 20101209
  Transmission Date: 20110411
  Serious: Yes (Other)
  Sender: FDA-Public Use
  Company Number: JP-JNJFOC-20101204700

PATIENT
  Sex: Male
  Weight: 72 kg

DRUGS (21)
  1. REMICADE [Suspect]
     Indication: PSORIASIS
     Route: 042
  2. REMICADE [Suspect]
     Route: 042
  3. REMICADE [Suspect]
     Route: 042
  4. REMICADE [Suspect]
     Route: 042
  5. REMICADE [Suspect]
     Route: 042
  6. HYDROCORTISONE BUTYRATE [Concomitant]
     Indication: PSORIASIS
  7. HYDROCORTISONE BUTYRATE [Concomitant]
  8. NEORAL [Concomitant]
     Indication: PSORIASIS
     Route: 048
  9. DERMOVATE [Concomitant]
     Indication: PSORIASIS
  10. BONALFA [Concomitant]
     Indication: PSORIASIS
  11. METHADERM [Concomitant]
     Indication: PSORIASIS
  12. MELBIN [Concomitant]
     Route: 048
  13. ZETIA [Concomitant]
     Route: 048
  14. ZYLORIC [Concomitant]
     Route: 048
  15. AMARYL [Concomitant]
     Route: 048
  16. ACTOS [Concomitant]
     Route: 048
  17. OXATOMIDE [Concomitant]
     Route: 048
  18. GLYCORAN [Concomitant]
     Route: 048
  19. SALOBEL [Concomitant]
     Route: 048
  20. LIVALO [Concomitant]
     Route: 048
  21. CELTECT [Concomitant]
     Route: 048

REACTIONS (2)
  - ANTINUCLEAR ANTIBODY POSITIVE [None]
  - ARTHRALGIA [None]
